FAERS Safety Report 18564756 (Version 3)
Quarter: 2020Q4

REPORT INFORMATION
  Report Type: Report from Study
  Country: SI (occurrence: SI)
  Receive Date: 20201201
  Receipt Date: 20201222
  Transmission Date: 20210114
  Serious: Yes (Death, Other)
  Sender: FDA-Public Use
  Company Number: SI-PFIZER INC-2020469043

PATIENT
  Age: 76 Year
  Sex: Male
  Weight: 72 kg

DRUGS (3)
  1. GLASDEGIB [Suspect]
     Active Substance: GLASDEGIB
     Indication: MYELODYSPLASTIC SYNDROME
  2. GLASDEGIB [Suspect]
     Active Substance: GLASDEGIB
     Indication: ACUTE LEUKAEMIA
     Dosage: 100 MG, 1X/DAY
     Route: 048
     Dates: start: 20191024, end: 20201118
  3. ARA-C [Concomitant]
     Active Substance: CYTARABINE
     Dosage: 20 MG, 1-5 DAYS
     Route: 040

REACTIONS (3)
  - Second primary malignancy [Recovered/Resolved]
  - Neoplasm [Recovered/Resolved]
  - Subdural haematoma [Fatal]

NARRATIVE: CASE EVENT DATE: 20200101
